FAERS Safety Report 25300445 (Version 1)
Quarter: 2025Q2

REPORT INFORMATION
  Report Type: Spontaneous
  Country: US (occurrence: None)
  Receive Date: 20250509
  Receipt Date: 20250509
  Transmission Date: 20250716
  Serious: Yes (Death)
  Sender: FDA-CTU
  Company Number: None

PATIENT
  Age: 73 Year
  Sex: Male

DRUGS (1)
  1. LENALIDOMIDE [Suspect]
     Active Substance: LENALIDOMIDE
     Indication: Respiratory disorder
     Dosage: FREQUENCY : DAILY;?
     Route: 048
     Dates: start: 20250117, end: 20250416

REACTIONS (2)
  - Atrial fibrillation [None]
  - Respiratory disorder [None]

NARRATIVE: CASE EVENT DATE: 20250416
